FAERS Safety Report 4375477-0 (Version None)
Quarter: 2004Q2

REPORT INFORMATION
  Report Type: 
  Country: None (occurrence: None)
  Receive Date: 20040607
  Receipt Date: 20040528
  Transmission Date: 20050107
  Serious: Yes (Death)
  Sender: FDA-Public Use
  Company Number: 206881

PATIENT
  Age: 15 Year
  Sex: Male
  Weight: 83 kg

DRUGS (5)
  1. XOLAIR [Suspect]
     Indication: ASTHMA
     Dosage: 300 MG, Q4W, SUBCUTANEOUS
     Route: 058
     Dates: start: 20040402, end: 20040503
  2. ADVAIR (SALMETEROL XINAFOATE, FLUTICANSONE PROPIONATE) [Concomitant]
  3. PREDNISONE TAB [Concomitant]
  4. ALBUTEROL NEBULIZER (ALBUTEROL SULFATE, ALBUTEROL) [Concomitant]
  5. INTAL [Concomitant]

REACTIONS (3)
  - CARDIAC ARREST [None]
  - EAR INFECTION [None]
  - MENINGITIS MENINGOCOCCAL [None]
